FAERS Safety Report 9321137 (Version 4)
Quarter: 2013Q4

REPORT INFORMATION
  Report Type: Report from Study
  Country: DE (occurrence: DE)
  Receive Date: 20130531
  Receipt Date: 20131108
  Transmission Date: 20140711
  Serious: Yes (Hospitalization)
  Sender: FDA-Public Use
  Company Number: DE-ROCHE-1229686

PATIENT
  Age: 66 Year
  Sex: Male
  Weight: 84 kg

DRUGS (12)
  1. RIBAVIRIN [Suspect]
     Indication: HEPATITIS C
     Route: 048
     Dates: start: 20121127, end: 20130513
  2. PEG-INTERFERON ALFA 2A [Suspect]
     Indication: HEPATITIS C
     Route: 058
     Dates: start: 20121127, end: 20130507
  3. TELAPREVIR [Suspect]
     Indication: HEPATITIS C
     Route: 048
     Dates: start: 20121127, end: 20130219
  4. VX-222 [Suspect]
     Indication: HEPATITIS C
     Route: 048
     Dates: start: 20121127, end: 20130219
  5. PANTOPRAZOLE [Concomitant]
     Route: 065
     Dates: start: 20121204, end: 20130224
  6. METOCLOPRAMIDE [Concomitant]
     Route: 065
     Dates: start: 20121204, end: 20130224
  7. MADOPAR [Concomitant]
     Route: 065
     Dates: start: 20060701
  8. FERRO SANOL DUODENAL [Concomitant]
     Route: 065
     Dates: start: 20100901
  9. PRAMIPEXOLE [Concomitant]
     Route: 065
     Dates: start: 20060701
  10. TORASEMIDE [Concomitant]
     Route: 065
     Dates: start: 20121211
  11. PARACODIN RETARD (GERMANY) [Concomitant]
     Route: 065
     Dates: start: 20130122
  12. POTASSIUM CHLORIDE [Concomitant]
     Dosage: REPORTED AS KALINOR
     Route: 065
     Dates: start: 20130123

REACTIONS (1)
  - Basal cell carcinoma [Recovered/Resolved]
